FAERS Safety Report 18644328 (Version 2)
Quarter: 2021Q2

REPORT INFORMATION
  Report Type: Report from Study
  Country: US (occurrence: US)
  Receive Date: 20201221
  Receipt Date: 20210414
  Transmission Date: 20210717
  Serious: No
  Sender: FDA-Public Use
  Company Number: NVSC2020US336063

PATIENT
  Sex: Female

DRUGS (1)
  1. COSENTYX [Suspect]
     Active Substance: SECUKINUMAB
     Indication: PSORIASIS
     Dosage: 300 MG, Q4W, BENEATH THE SKIN, USUALLY VIA INJECTION
     Route: 058

REACTIONS (2)
  - Drug ineffective [Unknown]
  - Psoriasis [Unknown]
